FAERS Safety Report 22049387 (Version 2)
Quarter: 2023Q1

REPORT INFORMATION
  Report Type: Spontaneous
  Country: US (occurrence: US)
  Receive Date: 20230301
  Receipt Date: 20230316
  Transmission Date: 20230417
  Serious: Yes (Death, Hospitalization)
  Sender: FDA-Public Use
  Company Number: US-TEVA-2023-US-2859589

PATIENT
  Age: 65 Year
  Sex: Female

DRUGS (9)
  1. EPINEPHRINE [Suspect]
     Active Substance: EPINEPHRINE
     Indication: Toxicity to various agents
     Route: 065
  2. VERAPAMIL [Suspect]
     Active Substance: VERAPAMIL HYDROCHLORIDE
     Indication: Product used for unknown indication
     Route: 065
  3. NOREPINEPHRINE [Suspect]
     Active Substance: NOREPINEPHRINE
     Indication: Toxicity to various agents
     Route: 065
  4. FAT EMULSION NOS [Suspect]
     Active Substance: EGG PHOSPHOLIPIDS\SAFFLOWER OIL\SOYBEAN OIL
     Indication: Product used for unknown indication
     Dosage: ROUTE: {INTRANASAL}; MEDICATION ERROR
     Route: 050
  5. CALCIUM [Suspect]
     Active Substance: CALCIUM
     Indication: Toxicity to various agents
     Route: 065
  6. GLUCAGON [Suspect]
     Active Substance: GLUCAGON
     Indication: Toxicity to various agents
     Route: 065
  7. INSULIN NOS [Suspect]
     Active Substance: INSULIN NOS
     Indication: Toxicity to various agents
     Dosage: HIGH DOSE
     Route: 065
  8. DEXTROSE [Suspect]
     Active Substance: DEXTROSE
     Indication: Toxicity to various agents
     Dosage: MORE THAN 5%
     Route: 065
  9. VASOPRESSIN [Suspect]
     Active Substance: VASOPRESSIN
     Indication: Toxicity to various agents
     Route: 065

REACTIONS (14)
  - Tachycardia [Fatal]
  - Hypotension [Fatal]
  - Bradycardia [Fatal]
  - Metabolic acidosis [Fatal]
  - Anion gap [Fatal]
  - Hepatotoxicity [Fatal]
  - Haemolysis [Fatal]
  - Coagulopathy [Fatal]
  - Acute kidney injury [Fatal]
  - Thrombocytopenia [Fatal]
  - Toxicity to various agents [Fatal]
  - Drug ineffective [Fatal]
  - Incorrect dose administered [Fatal]
  - Incorrect route of product administration [Fatal]
